FAERS Safety Report 23253069 (Version 1)
Quarter: 2023Q4

REPORT INFORMATION
  Report Type: Spontaneous
  Country: FR (occurrence: FR)
  Receive Date: 20231201
  Receipt Date: 20231201
  Transmission Date: 20240110
  Serious: Yes (Hospitalization, Other)
  Sender: FDA-Public Use
  Company Number: FR-AFSSAPS-AVPA2023000710

PATIENT
  Age: 30 Year
  Sex: Female

DRUGS (2)
  1. PREGABALIN [Suspect]
     Active Substance: PREGABALIN
     Indication: Product used for unknown indication
     Dosage: 300 MILLIGRAM, ONCE A DAY (5 * 300MG/J)
     Route: 065
  2. COCAINE [Suspect]
     Active Substance: COCAINE
     Indication: Product used for unknown indication
     Dosage: 1 TO 2 G/DAY
     Route: 045

REACTIONS (3)
  - Hallucination, visual [Recovering/Resolving]
  - Drug use disorder [Recovering/Resolving]
  - Drug dependence [Recovering/Resolving]
